FAERS Safety Report 12619985 (Version 2)
Quarter: 2017Q3

REPORT INFORMATION
  Report Type: Spontaneous
  Country: US (occurrence: US)
  Receive Date: 20160803
  Receipt Date: 20170822
  Transmission Date: 20171127
  Serious: No
  Sender: FDA-Public Use
  Company Number: US-ENDO PHARMACEUTICALS INC.-2015-004495

PATIENT
  Age: 57 Year
  Sex: Male
  Weight: 89.89 kg

DRUGS (3)
  1. TESTOPEL [Suspect]
     Active Substance: TESTOSTERONE
     Dosage: 6 PELLETS
     Route: 058
     Dates: start: 20150707
  2. TESTOPEL [Suspect]
     Active Substance: TESTOSTERONE
     Indication: BLOOD TESTOSTERONE DECREASED
  3. TESTOPEL [Suspect]
     Active Substance: TESTOSTERONE
     Dosage: 6 PELLETS
     Route: 058
     Dates: start: 20150922

REACTIONS (2)
  - Prescribed overdose [Recovered/Resolved]
  - Drug ineffective [Unknown]

NARRATIVE: CASE EVENT DATE: 201509
